FAERS Safety Report 10230387 (Version 1)
Quarter: 2014Q2

REPORT INFORMATION
  Report Type: Spontaneous
  Country: US (occurrence: US)
  Receive Date: 20140611
  Receipt Date: 20140611
  Transmission Date: 20141212
  Serious: No
  Sender: FDA-Public Use
  Company Number: US-INCYTE CORPORATION-2014IN000526

PATIENT
  Age: 57 Year
  Sex: Female

DRUGS (17)
  1. JAKAFI [Suspect]
     Indication: MYELOFIBROSIS
     Dosage: 10 MG, BID
     Route: 048
     Dates: start: 20130426
  2. NEURONTIN [Concomitant]
  3. IMDUR [Concomitant]
  4. BUSPIRONE [Concomitant]
  5. MELOXICAM [Concomitant]
  6. ASPIRIN [Concomitant]
  7. METOPROLOL [Concomitant]
  8. DOCUSATE SODIUM [Concomitant]
  9. LORATADINE [Concomitant]
  10. SUDAFED                            /00076302/ [Concomitant]
  11. VITAMIN E                          /00110501/ [Concomitant]
  12. MAGNESIUM [Concomitant]
  13. B COMPLEX                          /00212701/ [Concomitant]
  14. VITAMIN D3 [Concomitant]
  15. LUTEIN                             /01638501/ [Concomitant]
  16. FISH OIL [Concomitant]
  17. MULTIVITAMIN                       /00097801/ [Concomitant]

REACTIONS (9)
  - Bronchitis [Recovered/Resolved]
  - Arthralgia [Unknown]
  - Myalgia [Unknown]
  - Arthralgia [Unknown]
  - Non-cardiac chest pain [Unknown]
  - Dyspnoea [Unknown]
  - Asthenia [Unknown]
  - Musculoskeletal chest pain [Unknown]
  - Ear discomfort [Unknown]
